FAERS Safety Report 6110432-1 (Version None)
Quarter: 2009Q1

REPORT INFORMATION
  Report Type: 
  Country: None (occurrence: None)
  Receive Date: 20090310
  Receipt Date: 20090302
  Transmission Date: 20090719
  Serious: Yes (Other)
  Sender: FDA-Public Use
  Company Number: US-ABBOTT-09P-163-0560367-00

PATIENT
  Sex: Female
  Weight: 60.382 kg

DRUGS (1)
  1. HUMIRA [Suspect]
     Indication: CROHN'S DISEASE
     Dates: start: 20070707

REACTIONS (3)
  - HYSTERECTOMY [None]
  - KIDNEY INFECTION [None]
  - TOOTH INFECTION [None]
